FAERS Safety Report 7397353-1 (Version None)
Quarter: 2011Q2

REPORT INFORMATION
  Report Type: 
  Country: None (occurrence: None)
  Receive Date: 20110406
  Receipt Date: 20110401
  Transmission Date: 20111010
  Serious: No
  Sender: FDA-Public Use
  Company Number: US-PFIZER INC-2011073296

PATIENT
  Sex: Female
  Weight: 50.794 kg

DRUGS (1)
  1. PREMARIN [Suspect]
     Indication: VULVOVAGINAL DRYNESS
     Dosage: 0.625 MG, UNK
     Route: 067
     Dates: start: 20110326, end: 20110401

REACTIONS (2)
  - VULVOVAGINAL BURNING SENSATION [None]
  - DIZZINESS [None]
